FAERS Safety Report 16744264 (Version 1)
Quarter: 2019Q3

REPORT INFORMATION
  Report Type: Spontaneous
  Country: US (occurrence: US)
  Receive Date: 20190827
  Receipt Date: 20190827
  Transmission Date: 20191005
  Serious: Yes (Hospitalization)
  Sender: FDA-Public Use
  Company Number: US-AMGEN-USASP2019134764

PATIENT
  Sex: Male

DRUGS (1)
  1. NEULASTA [Suspect]
     Active Substance: PEGFILGRASTIM
     Indication: NEUTROPENIA
     Dosage: UNK
     Route: 065

REACTIONS (5)
  - Renal pain [Unknown]
  - Fatigue [Unknown]
  - Diarrhoea [Unknown]
  - White blood cell disorder [Unknown]
  - Back pain [Unknown]

NARRATIVE: CASE EVENT DATE: 201908
